FAERS Safety Report 21556085 (Version 2)
Quarter: 2023Q1

REPORT INFORMATION
  Report Type: Spontaneous
  Country: US (occurrence: US)
  Receive Date: 20221104
  Receipt Date: 20230210
  Transmission Date: 20230417
  Serious: No
  Sender: FDA-Public Use
  Company Number: US-LUPIN PHARMACEUTICALS INC.-2022-12928

PATIENT

DRUGS (1)
  1. ALBUTEROL SULFATE [Suspect]
     Active Substance: ALBUTEROL SULFATE
     Indication: Asthma
     Dosage: UNK UNK, 1 PUFFS TWICE A DAY
     Dates: start: 20221003

REACTIONS (5)
  - Product dose omission issue [Unknown]
  - Circumstance or information capable of leading to medication error [Unknown]
  - Wrong technique in product usage process [Unknown]
  - Product substitution issue [Unknown]
  - No adverse event [Unknown]
